FAERS Safety Report 5043862-X (Version None)
Quarter: 2006Q2

REPORT INFORMATION
  Report Type: 
  Country: None (occurrence: None)
  Receive Date: 20060629
  Receipt Date: 20060616
  Transmission Date: 20061013
  Serious: Yes (Other)
  Sender: FDA-Public Use
  Company Number: 2006-DE-03083GD

PATIENT
  Age: 15 Year
  Sex: Male
  Weight: 57 kg

DRUGS (7)
  1. PREDNISONE TAB [Suspect]
     Indication: FOCAL GLOMERULOSCLEROSIS
     Dosage: 60 MG, PO
     Route: 048
  2. PREDNISONE TAB [Suspect]
     Indication: NEPHROTIC SYNDROME
     Dosage: 60 MG, PO
     Route: 048
  3. PREDNISONE TAB [Suspect]
     Indication: RENAL FAILURE
     Dosage: 60 MG, PO
     Route: 048
  4. CAPTOPRIL [Suspect]
     Indication: FOCAL GLOMERULOSCLEROSIS
  5. CAPTOPRIL [Suspect]
     Indication: NEPHROTIC SYNDROME
  6. CAPTOPRIL [Suspect]
     Indication: RENAL FAILURE
  7. HYDROXYUREA [Concomitant]

REACTIONS (7)
  - BLOOD CREATININE INCREASED [None]
  - CEREBRAL INFARCTION [None]
  - DRUG INEFFECTIVE [None]
  - HYPOAESTHESIA [None]
  - HYPOPERFUSION [None]
  - NEPHROPATHY [None]
  - VISION BLURRED [None]
